FAERS Safety Report 21614656 (Version 1)
Quarter: 2022Q4

REPORT INFORMATION
  Report Type: Other
  Country: JP (occurrence: None)
  Receive Date: 20221118
  Receipt Date: 20221118
  Transmission Date: 20230113
  Serious: Yes (Other)
  Sender: FDA-Public Use
  Company Number: JP-ROCHE-3221003

PATIENT
  Sex: Female

DRUGS (1)
  1. RITUXAN [Suspect]
     Active Substance: RITUXIMAB
     Indication: Systemic lupus erythematosus
     Route: 041

REACTIONS (4)
  - Secondary immunodeficiency [Unknown]
  - Bacteraemia [Recovering/Resolving]
  - Cellulitis [Unknown]
  - Off label use [Unknown]
